FAERS Safety Report 6484217-0 (Version None)
Quarter: 2009Q4

REPORT INFORMATION
  Report Type: 
  Country: None (occurrence: None)
  Receive Date: 20091209
  Receipt Date: 20091202
  Transmission Date: 20100525
  Serious: Yes (Hospitalization)
  Sender: FDA-Public Use
  Company Number: A0834170A

PATIENT
  Age: 36 Year
  Sex: Female

DRUGS (2)
  1. TYKERB [Suspect]
     Dosage: 1250MG PER DAY
     Route: 048
     Dates: start: 20090401
  2. CAPECITABINE [Suspect]
     Route: 065

REACTIONS (3)
  - BILE DUCT STENT INSERTION [None]
  - JAUNDICE CHOLESTATIC [None]
  - PANCREATIC MASS [None]
